FAERS Safety Report 11990816 (Version 1)
Quarter: 2016Q1

REPORT INFORMATION
  Report Type: Spontaneous
  Country: US (occurrence: US)
  Receive Date: 20160202
  Receipt Date: 20160202
  Transmission Date: 20160526
  Serious: Yes (Hospitalization, Other)
  Sender: FDA-Public Use
  Company Number: US-ALEXION-A201600402

PATIENT
  Age: 63 Year
  Sex: Male

DRUGS (4)
  1. SOLIRIS [Suspect]
     Active Substance: ECULIZUMAB
     Indication: HAEMOLYTIC URAEMIC SYNDROME
     Dosage: INDUCTION DOSE WEEK 1
     Route: 042
     Dates: start: 20151124, end: 20151124
  2. SOLIRIS [Suspect]
     Active Substance: ECULIZUMAB
     Dosage: INDUCTION DOSE WEEK 2
     Route: 042
     Dates: start: 20151201, end: 20151201
  3. SOLIRIS [Suspect]
     Active Substance: ECULIZUMAB
     Dosage: 1200 MG, Q2W
     Route: 042
     Dates: start: 20160105
  4. SOLIRIS [Suspect]
     Active Substance: ECULIZUMAB
     Dosage: INDUCTION DOSE WEEK 3
     Route: 042
     Dates: start: 20151208, end: 20151208

REACTIONS (12)
  - Dyspnoea [Not Recovered/Not Resolved]
  - Oxygen saturation decreased [Not Recovered/Not Resolved]
  - Blood creatinine abnormal [Not Recovered/Not Resolved]
  - Procalcitonin increased [Not Recovered/Not Resolved]
  - Platelet count increased [Not Recovered/Not Resolved]
  - Upper respiratory tract infection [Unknown]
  - White blood cell count increased [Not Recovered/Not Resolved]
  - Malaise [Not Recovered/Not Resolved]
  - Pulmonary oedema [Unknown]
  - Fatigue [Not Recovered/Not Resolved]
  - Blood lactate dehydrogenase increased [Not Recovered/Not Resolved]
  - Cough [Not Recovered/Not Resolved]

NARRATIVE: CASE EVENT DATE: 201601
